FAERS Safety Report 5993771-4 (Version None)
Quarter: 2008Q4

REPORT INFORMATION
  Report Type: 
  Country: None (occurrence: None)
  Receive Date: 20081212
  Receipt Date: 20081202
  Transmission Date: 20090506
  Serious: Yes (Death, Hospitalization, Other)
  Sender: FDA-Public Use
  Company Number: ES-ELI_LILLY_AND_COMPANY-ES200812000827

PATIENT
  Age: 80 Year
  Sex: Male

DRUGS (5)
  1. FORTEO [Suspect]
     Indication: OSTEOPOROSIS
     Dosage: 20 UG, UNKNOWN
     Route: 058
     Dates: start: 20080901
  2. SINTROM [Concomitant]
     Dosage: UNK, UNKNOWN
     Route: 065
  3. MORPHINE [Concomitant]
     Dosage: UNK, UNKNOWN
     Route: 065
  4. INSULIN [Concomitant]
     Dosage: UNK, UNKNOWN
     Route: 065
  5. OMEPRAZOLE [Concomitant]
     Dosage: UNK, UNKNOWN
     Route: 065

REACTIONS (5)
  - CARDIAC DISORDER [None]
  - EYE DISORDER [None]
  - LOCALISED INFECTION [None]
  - RESPIRATORY ARREST [None]
  - SKIN DISCOLOURATION [None]
